FAERS Safety Report 10448256 (Version 2)
Quarter: 2014Q4

REPORT INFORMATION
  Report Type: Spontaneous
  Country: BR (occurrence: BR)
  Receive Date: 20140911
  Receipt Date: 20141216
  Transmission Date: 20150528
  Serious: Yes (Other)
  Sender: FDA-Public Use
  Company Number: BR-ASTRAZENECA-2014SE66811

PATIENT
  Age: 54 Year
  Sex: Female
  Weight: 66 kg

DRUGS (5)
  1. CORTICOSTEROID [Concomitant]
     Active Substance: CORTICOSTEROID NOS
  2. SYMBICORT [Suspect]
     Active Substance: BUDESONIDE\FORMOTEROL FUMARATE DIHYDRATE
     Indication: ASTHMA
     Dosage: ALENIA, UKNOWN DOSE AND FREQUENCY
     Route: 055
     Dates: start: 201408, end: 201409
  3. SYMBICORT [Suspect]
     Active Substance: BUDESONIDE\FORMOTEROL FUMARATE DIHYDRATE
     Indication: ASTHMA
     Dosage: 320/9 MCG, THREE TIMES A DAY
     Route: 055
     Dates: start: 2003, end: 201408
  4. NOEX [Suspect]
     Active Substance: BUDESONIDE
     Indication: NASAL POLYPS
     Route: 045
     Dates: start: 201401
  5. SYMBICORT [Suspect]
     Active Substance: BUDESONIDE\FORMOTEROL FUMARATE DIHYDRATE
     Indication: ASTHMA
     Route: 055
     Dates: start: 201409

REACTIONS (7)
  - Aphonia [Recovered/Resolved]
  - Weight increased [Recovered/Resolved]
  - Nasal polyps [Recovered/Resolved]
  - Off label use [Recovered/Resolved]
  - Aphthous stomatitis [Not Recovered/Not Resolved]
  - Weight decreased [Recovered/Resolved]
  - Throat irritation [Recovered/Resolved]

NARRATIVE: CASE EVENT DATE: 2003
